FAERS Safety Report 7998188-9 (Version None)
Quarter: 2011Q4

REPORT INFORMATION
  Report Type: 
  Country: None (occurrence: None)
  Receive Date: 20111221
  Receipt Date: 20110331
  Transmission Date: 20120403
  Serious: No
  Sender: FDA-Public Use
  Company Number: US-GLAXOSMITHKLINE-A0920888A

PATIENT
  Age: 61 Year
  Sex: Male

DRUGS (6)
  1. CALCIUM [Concomitant]
  2. COQ10 [Concomitant]
  3. LOVAZA [Suspect]
     Indication: BLOOD TRIGLYCERIDES INCREASED
     Dosage: 2CAP TWICE PER DAY
     Route: 048
     Dates: start: 20101224
  4. MAGNESIUM [Concomitant]
  5. MULTI-VITAMIN [Concomitant]
  6. OSSEINE-HYDROXYAPATITE [Concomitant]

REACTIONS (1)
  - BLOOD TRIGLYCERIDES INCREASED [None]
